FAERS Safety Report 7105645-6 (Version None)
Quarter: 2010Q4

REPORT INFORMATION
  Report Type: 
  Country: None (occurrence: None)
  Receive Date: 20101110
  Receipt Date: 20101026
  Transmission Date: 20110411
  Serious: Yes (Death, Hospitalization)
  Sender: FDA-Public Use
  Company Number: 2009001682

PATIENT
  Age: 67 Year
  Sex: Male
  Weight: 69 kg

DRUGS (8)
  1. ERLOTINIB (ERLOTINIB) (TABLET) (ERLOTINIB) [Suspect]
     Indication: NON-SMALL CELL LUNG CANCER
     Dosage: (150 MG, QD), ORAL
     Route: 048
     Dates: start: 20090205, end: 20090515
  2. CP-751. 871 [Suspect]
     Indication: NON-SMALL CELL LUNG CANCER
     Dosage: (20 MG/KG, Q3W), INTRAVENOUS
     Route: 042
     Dates: start: 20090205, end: 20090430
  3. REPAGLINIDE [Concomitant]
  4. LASIX [Concomitant]
  5. TORADOL (KETOROLAC TROMETHAZINE) [Concomitant]
  6. DIFLUCAN [Concomitant]
  7. CO-EFFERALGAN (PANADEINE CO) [Concomitant]
  8. PEPTAZOL (PANTOPREZOLE) [Concomitant]

REACTIONS (5)
  - HYPERGLYCAEMIA [None]
  - LEUKOCYTOSIS [None]
  - NEUTROPHIL PERCENTAGE INCREASED [None]
  - PULMONARY CAVITATION [None]
  - RESPIRATORY FAILURE [None]
